FAERS Safety Report 13884603 (Version 3)
Quarter: 2017Q4

REPORT INFORMATION
  Report Type: Spontaneous
  Country: US (occurrence: US)
  Receive Date: 20170821
  Receipt Date: 20171007
  Transmission Date: 20180320
  Serious: Yes (Hospitalization, Other)
  Sender: FDA-Public Use
  Company Number: US-009507513-1708USA008666

PATIENT
  Sex: Female
  Weight: 86.17 kg

DRUGS (2)
  1. NUVARING [Suspect]
     Active Substance: ETHINYL ESTRADIOL\ETONOGESTREL
     Indication: CONTRACEPTION
     Dosage: 1 DF, QM; RELEASES ON AVERAGE 0.12 MG/DAY OF ETONEGESTREL AND 0.015 MG/DAY OF ETHINYL ESTRADIOL)
     Route: 067
     Dates: start: 2007, end: 2011
  2. NUVARING [Suspect]
     Active Substance: ETHINYL ESTRADIOL\ETONOGESTREL
     Dosage: 1 DF, QM; RELEASES ON AVERAGE 0.12 MG/DAY OF ETONEGESTREL AND 0.015 MG/DAY OF ETHINYL ESTRADIOL)
     Route: 067
     Dates: start: 2014, end: 2015

REACTIONS (3)
  - Pulmonary embolism [Recovered/Resolved]
  - Thrombosis [Unknown]
  - Maternal exposure before pregnancy [Unknown]

NARRATIVE: CASE EVENT DATE: 20150727
